FAERS Safety Report 9345336 (Version 1)
Quarter: 2013Q2

REPORT INFORMATION
  Report Type: Spontaneous
  Country: US (occurrence: US)
  Receive Date: 20130613
  Receipt Date: 20130613
  Transmission Date: 20140414
  Serious: No
  Sender: FDA-Public Use
  Company Number: US-B.I. PHARMACEUTICALS,INC./RIDGEFIELD-2013-BI-16158BP

PATIENT
  Sex: Female
  Weight: 54 kg

DRUGS (8)
  1. COMBIVENT [Suspect]
     Indication: CHRONIC OBSTRUCTIVE PULMONARY DISEASE
     Dosage: STRENGTH: 18 MCG / 103 MCG; DAILY DOSE: 144 MCG / 824 MCG
     Route: 055
     Dates: start: 2007
  2. LUVOX [Concomitant]
     Indication: DEPRESSION
     Dosage: 25 MG
     Route: 048
  3. ZYPREXA [Concomitant]
     Indication: DEPRESSION
     Dosage: 5 MG
     Route: 048
  4. NORCO [Concomitant]
     Indication: BACK PAIN
     Dosage: STRENGTH: 10 MG/ 325 MG;
     Route: 048
  5. XANAX [Concomitant]
     Indication: ANXIETY
     Route: 048
  6. FAMOTIDINE [Concomitant]
     Indication: HYPERCHLORHYDRIA
     Route: 048
  7. OMEPRAZOLE ER [Concomitant]
     Indication: HYPERCHLORHYDRIA
     Route: 048
  8. OXYGEN [Concomitant]
     Dosage: DAILY DOSE: 2 LITERS

REACTIONS (2)
  - Cataract [Not Recovered/Not Resolved]
  - Weight decreased [Not Recovered/Not Resolved]
